FAERS Safety Report 7311632-5 (Version None)
Quarter: 2011Q1

REPORT INFORMATION
  Report Type: 
  Country: None (occurrence: None)
  Receive Date: 20110215
  Receipt Date: 20110215
  Transmission Date: 20110831
  Serious: Yes (Life-Threatening)
  Sender: FDA-Public Use
  Company Number: None

PATIENT
  Sex: Male
  Weight: 69.4003 kg

DRUGS (2)
  1. NAPROXEN [Suspect]
     Indication: MUSCLE STRAIN
     Dosage: 1 (ONE) 2(TWICE) ORAL
     Route: 048
     Dates: start: 20110114
  2. CYCLOBENZAPRINE [Suspect]
     Indication: MUSCLE STRAIN
     Dosage: 1 (ONE)  1(ONCE) ORAL
     Route: 048
     Dates: start: 20110114, end: 20110125

REACTIONS (2)
  - ASTHENIA [None]
  - CHEST PAIN [None]
